FAERS Safety Report 5460066-7 (Version None)
Quarter: 2007Q3

REPORT INFORMATION
  Report Type: 
  Country: None (occurrence: None)
  Receive Date: 20070919
  Receipt Date: 20070511
  Transmission Date: 20080115
  Serious: No
  Sender: FDA-Public Use
  Company Number: US-ASTRAZENECA-2007UW11304

PATIENT
  Age: 76 Year
  Sex: Female
  Weight: 52.2 kg

DRUGS (8)
  1. SEROQUEL [Suspect]
     Indication: DEPRESSION
     Route: 048
  2. SEROQUEL [Suspect]
     Route: 048
  3. ATENOLOL [Concomitant]
  4. DIOVAN [Concomitant]
  5. NORVASC [Concomitant]
  6. EVISTA [Concomitant]
  7. SYNTHROID [Concomitant]
  8. ALPRAZOLAM [Concomitant]

REACTIONS (5)
  - ACTIVITIES OF DAILY LIVING IMPAIRED [None]
  - CONFUSIONAL STATE [None]
  - DISTURBANCE IN ATTENTION [None]
  - SEDATION [None]
  - SOMNOLENCE [None]
